FAERS Safety Report 12685938 (Version 2)
Quarter: 2016Q4

REPORT INFORMATION
  Report Type: Report from Study
  Country: US (occurrence: US)
  Receive Date: 20160825
  Receipt Date: 20161017
  Transmission Date: 20170207
  Serious: Yes (Other)
  Sender: FDA-Public Use
  Company Number: PHEH2016US021465

PATIENT
  Age: 9 Year
  Sex: Female
  Weight: 29.3 kg

DRUGS (1)
  1. ILARIS [Suspect]
     Active Substance: CANAKINUMAB
     Dosage: 110 MG, EVERY 4 WEEKS
     Route: 058
     Dates: start: 20160721

REACTIONS (7)
  - Arthritis infective [Recovered/Resolved]
  - Vomiting [Recovered/Resolved]
  - Staphylococcal infection [Recovered/Resolved]
  - Malaise [Unknown]
  - Abdominal discomfort [Recovered/Resolved]
  - Vomiting [Recovered/Resolved]
  - Abdominal discomfort [Recovered/Resolved]

NARRATIVE: CASE EVENT DATE: 20160731
